FAERS Safety Report 5395141-9 (Version None)
Quarter: 2007Q3

REPORT INFORMATION
  Report Type: 
  Country: None (occurrence: None)
  Receive Date: 20070724
  Receipt Date: 20070713
  Transmission Date: 20080115
  Serious: Yes (Other)
  Sender: FDA-Public Use
  Company Number: CA-JNJFOC-20060606655

PATIENT
  Sex: Male

DRUGS (16)
  1. REMICADE [Suspect]
     Dosage: 8 INFUSIONS ON UNKNOWN DATES
     Route: 042
  2. REMICADE [Suspect]
     Dosage: 8 INFUSIONS ON UNKNOWN DATES
     Route: 042
  3. REMICADE [Suspect]
     Dosage: 8 INFUSIONS ON UNKNOWN DATES
     Route: 042
  4. REMICADE [Suspect]
     Dosage: 8 INFUSIONS ON UNKNOWN DATES
     Route: 042
  5. REMICADE [Suspect]
     Dosage: 8 INFUSIONS ON UNKNOWN DATES
     Route: 042
  6. REMICADE [Suspect]
     Dosage: 8 INFUSIONS ON UNKNOWN DATES
     Route: 042
  7. REMICADE [Suspect]
     Dosage: 8 INFUSIONS ON UNKNOWN DATES
     Route: 042
  8. REMICADE [Suspect]
     Dosage: 8 INFUSIONS ON UNKNOWN DATES
     Route: 042
  9. REMICADE [Suspect]
     Dosage: 8 INFUSIONS ON UNKNOWN DATES
     Route: 042
  10. REMICADE [Suspect]
     Dosage: 8 INFUSIONS ON UNKNOWN DATES
     Route: 042
  11. REMICADE [Suspect]
     Indication: RHEUMATOID ARTHRITIS
     Dosage: 8 INFUSIONS ON UNKNOWN DATES
     Route: 042
  12. REMICADE [Suspect]
     Indication: CROHN'S DISEASE
     Dosage: 8 INFUSIONS ON UNKNOWN DATES
     Route: 042
  13. REMICADE [Suspect]
     Indication: PYODERMA GANGRENOSUM
     Dosage: 8 INFUSIONS ON UNKNOWN DATES
     Route: 042
  14. METHOTREXATE [Concomitant]
     Dosage: SUBCUTANEOUS
  15. METHOTREXATE [Concomitant]
     Indication: CROHN'S DISEASE
     Dosage: ORAL
  16. PREDNISONE [Concomitant]
     Indication: CROHN'S DISEASE
     Route: 048

REACTIONS (7)
  - COLECTOMY [None]
  - COLOSTOMY [None]
  - ILEOSTOMY [None]
  - INFUSION RELATED REACTION [None]
  - PRURITUS [None]
  - PYODERMA GANGRENOSUM [None]
  - URTICARIA [None]
